FAERS Safety Report 13711413 (Version 1)
Quarter: 2017Q3

REPORT INFORMATION
  Report Type: Spontaneous
  Country: JP (occurrence: JP)
  Receive Date: 20170703
  Receipt Date: 20170703
  Transmission Date: 20171127
  Serious: Yes (Death)
  Sender: FDA-Public Use
  Company Number: JP-MYLANLABS-2017M1040023

PATIENT

DRUGS (4)
  1. METHOTREXATE. [Suspect]
     Active Substance: METHOTREXATE
     Indication: RHEUMATOID ARTHRITIS
     Dosage: (WEEKLY DOSES OF 6-10MG, DIVIDED INTO 2 OR 3 DOSES EVERY 12 HOURS
     Route: 048
     Dates: start: 2004, end: 201008
  2. PREDNISOLONE. [Concomitant]
     Active Substance: PREDNISOLONE
     Indication: RHEUMATOID ARTHRITIS
     Route: 065
     Dates: start: 2004
  3. BUCILLAMINE [Concomitant]
     Active Substance: BUCILLAMINE
     Indication: RHEUMATOID ARTHRITIS
     Dosage: UNK
     Route: 065
     Dates: start: 1997
  4. PENICILLAMINE [Concomitant]
     Active Substance: PENICILLAMINE
     Indication: RHEUMATOID ARTHRITIS
     Route: 065
     Dates: start: 200209, end: 200506

REACTIONS (2)
  - Acute myeloid leukaemia [Fatal]
  - Myelodysplastic syndrome [Fatal]

NARRATIVE: CASE EVENT DATE: 201008
